FAERS Safety Report 4709867-0 (Version None)
Quarter: 2005Q3

REPORT INFORMATION
  Report Type: 
  Country: None (occurrence: None)
  Receive Date: 20050708
  Receipt Date: 20050628
  Transmission Date: 20060218
  Serious: Yes (Other)
  Sender: FDA-Public Use
  Company Number: US-GLAXOSMITHKLINE-A0564462A

PATIENT
  Age: 23 Year
  Sex: Male
  Weight: 79.5 kg

DRUGS (1)
  1. DEBROX DROPS [Suspect]
     Route: 001

REACTIONS (5)
  - BALANCE DISORDER [None]
  - DEAFNESS UNILATERAL [None]
  - DIZZINESS [None]
  - NAUSEA [None]
  - TINNITUS [None]
